FAERS Safety Report 8796225 (Version 2)
Quarter: 2012Q4

REPORT INFORMATION
  Report Type: 
  Country: US (occurrence: US)
  Receive Date: 20120920
  Receipt Date: 20121101
  Transmission Date: 20130627
  Serious: Yes (Death, Other)
  Sender: FDA-Public Use
  Company Number: US-PFIZER INC-2012230780

PATIENT
  Age: 75 Year
  Sex: Male

DRUGS (1)
  1. XALKORI [Suspect]
     Indication: CANCER
     Dosage: 250 mg, 2x/day
     Route: 048
     Dates: start: 20120406

REACTIONS (2)
  - Death [Fatal]
  - Convulsion [Unknown]
